FAERS Safety Report 18883893 (Version 4)
Quarter: 2024Q3

REPORT INFORMATION
  Report Type: Spontaneous
  Country: JP (occurrence: JP)
  Receive Date: 20210211
  Receipt Date: 20240905
  Transmission Date: 20241016
  Serious: Yes (Death, Other)
  Sender: JOHNSON AND JOHNSON
  Company Number: JP-JNJFOC-A-CH2019-194810

PATIENT
  Age: 68 Year
  Sex: Female
  Weight: 50.3 kg

DRUGS (10)
  1. OPSUMIT [Suspect]
     Active Substance: MACITENTAN
     Indication: Pulmonary arterial hypertension
     Route: 048
  2. OPSUMIT [Suspect]
     Active Substance: MACITENTAN
     Dosage: 10 MG, QD
     Route: 048
     Dates: end: 20200330
  3. UPTRAVI [Suspect]
     Active Substance: SELEXIPAG
     Indication: Pulmonary arterial hypertension
     Dosage: 0.2 MG, BID
     Route: 048
     Dates: start: 20190206, end: 20190304
  4. UPTRAVI [Suspect]
     Active Substance: SELEXIPAG
     Dosage: 0.4 MG, BID
     Route: 048
     Dates: start: 20190305, end: 20190309
  5. UPTRAVI [Suspect]
     Active Substance: SELEXIPAG
     Dosage: 0.3 MG, BID
     Route: 048
     Dates: start: 20190310
  6. UPTRAVI [Suspect]
     Active Substance: SELEXIPAG
     Route: 048
     Dates: end: 20200331
  7. URSO [Concomitant]
     Active Substance: URSODIOL
     Indication: Hepatic cirrhosis
     Dosage: 300 MG, QD
     Dates: end: 20200330
  8. PAROXETINE [Concomitant]
     Active Substance: PAROXETINE
     Indication: Depression
     Dosage: 10 MG, QD
     Dates: end: 20200330
  9. VONOPRAZAN FUMARATE [Concomitant]
     Active Substance: VONOPRAZAN FUMARATE
  10. ALPRAZOLAM [Concomitant]
     Active Substance: ALPRAZOLAM

REACTIONS (10)
  - Intra-abdominal haemorrhage [Fatal]
  - Road traffic accident [Fatal]
  - Ascites [Recovering/Resolving]
  - Platelet count decreased [Recovered/Resolved]
  - Headache [Recovering/Resolving]
  - Diarrhoea [Recovering/Resolving]
  - Depression [Recovered/Resolved]
  - Decreased appetite [Unknown]
  - Hypoalbuminaemia [Unknown]
  - Pleural effusion [Recovering/Resolving]

NARRATIVE: CASE EVENT DATE: 20190101
